FAERS Safety Report 18579180 (Version 2)
Quarter: 2021Q1

REPORT INFORMATION
  Report Type: Report from Study
  Country: US (occurrence: US)
  Receive Date: 20201204
  Receipt Date: 20210112
  Transmission Date: 20210419
  Serious: Yes (Hospitalization)
  Sender: FDA-Public Use
  Company Number: US-PUMA BIOTECHNOLOGY, LTD.-2020US001524

PATIENT

DRUGS (6)
  1. NERLYNX [Suspect]
     Active Substance: NERATINIB
     Dosage: 120 MG (3 TABLETS), DAILY
     Route: 048
     Dates: start: 20200303, end: 20200307
  2. NERLYNX [Suspect]
     Active Substance: NERATINIB
     Dosage: 240 (6 TABLETS), DAILY
     Route: 048
     Dates: start: 20200322, end: 2020
  3. NERLYNX [Suspect]
     Active Substance: NERATINIB
     Dosage: 160 MG (4 TABLETS), DAILY
     Route: 048
     Dates: start: 20200308, end: 20200314
  4. NERLYNX [Suspect]
     Active Substance: NERATINIB
     Dosage: 240 (6 TABLETS), DAILY
     Route: 048
     Dates: start: 2020
  5. NERLYNX [Suspect]
     Active Substance: NERATINIB
     Dosage: 200 MG (5 TABLETS), DAILY
     Route: 048
     Dates: start: 20200315, end: 20200321
  6. NERLYNX [Suspect]
     Active Substance: NERATINIB
     Indication: BREAST CANCER
     Dosage: 80 MG (2 TABLETS), DAILY
     Route: 048
     Dates: start: 20200227, end: 20200302

REACTIONS (7)
  - Paraesthesia [Unknown]
  - Dyspnoea [Unknown]
  - Dizziness [Unknown]
  - Nausea [Unknown]
  - Surgery [Unknown]
  - Diarrhoea [Not Recovered/Not Resolved]
  - Drug titration [Unknown]

NARRATIVE: CASE EVENT DATE: 2020
